FAERS Safety Report 9913283 (Version 1)
Quarter: 2014Q1

REPORT INFORMATION
  Report Type: Spontaneous
  Country: US (occurrence: US)
  Receive Date: 20140220
  Receipt Date: 20140220
  Transmission Date: 20141002
  Serious: Yes (Other)
  Sender: FDA-Public Use
  Company Number: US-MYLANLABS-2014S1003050

PATIENT
  Age: 58 Year
  Sex: Female

DRUGS (1)
  1. OLANZAPINE [Suspect]
     Route: 065

REACTIONS (3)
  - Hypersensitivity vasculitis [Recovering/Resolving]
  - Mental status changes [Unknown]
  - Lethargy [Unknown]
